FAERS Safety Report 18417337 (Version 2)
Quarter: 2021Q4

REPORT INFORMATION
  Report Type: Spontaneous
  Country: US (occurrence: US)
  Receive Date: 20201022
  Receipt Date: 20211025
  Transmission Date: 20220303
  Serious: Yes (Other)
  Sender: FDA-Public Use
  Company Number: US-SEATTLE GENETICS-2020SGN02913

PATIENT
  Sex: Female

DRUGS (4)
  1. TUKYSA [Suspect]
     Active Substance: TUCATINIB
     Indication: Breast cancer female
  2. TUKYSA [Suspect]
     Active Substance: TUCATINIB
     Dosage: 150 MG
  3. TUKYSA [Suspect]
     Active Substance: TUCATINIB
     Dosage: 50 UNK
  4. CAPECITABINE [Suspect]
     Active Substance: CAPECITABINE
     Indication: Breast cancer female
     Dosage: 50 MG

REACTIONS (5)
  - Cardiac failure congestive [Unknown]
  - Pain in extremity [Unknown]
  - Dyspnoea exertional [Unknown]
  - Back pain [Unknown]
  - Arthralgia [Unknown]
